FAERS Safety Report 9897413 (Version 2)
Quarter: 2014Q1

REPORT INFORMATION
  Report Type: Spontaneous
  Country: ZA (occurrence: ZA)
  Receive Date: 20140214
  Receipt Date: 20140319
  Transmission Date: 20141002
  Serious: Yes (Death, Hospitalization)
  Sender: FDA-Public Use
  Company Number: ZA-BRISTOL-MYERS SQUIBB COMPANY-20181772

PATIENT
  Age: 51 Year
  Sex: Female

DRUGS (1)
  1. IXEMPRA [Suspect]
     Indication: BREAST CANCER
     Route: 042
     Dates: start: 20140116, end: 20140116

REACTIONS (3)
  - Neutropenia [Fatal]
  - Rash [Unknown]
  - Asthenia [Unknown]
